FAERS Safety Report 11089137 (Version 26)
Quarter: 2016Q4

REPORT INFORMATION
  Report Type: Report from Study
  Country: DE (occurrence: DE)
  Receive Date: 20150505
  Receipt Date: 20161215
  Transmission Date: 20170206
  Serious: Yes (Hospitalization)
  Sender: FDA-Public Use
  Company Number: DE-ROCHE-1459359

PATIENT
  Sex: Male
  Weight: 90 kg

DRUGS (13)
  1. ROACTEMRA [Suspect]
     Active Substance: TOCILIZUMAB
     Indication: RHEUMATOID ARTHRITIS
     Dosage: DATE OF LAST DOSE OF TOCILIZUMAB PRIOR TO SAE 28/FEB/2015
     Route: 058
     Dates: start: 20140910, end: 201501
  2. PREDNISOLON [Concomitant]
     Active Substance: PREDNISOLONE
     Route: 065
  3. ROACTEMRA [Suspect]
     Active Substance: TOCILIZUMAB
     Indication: RHEUMATOID ARTHRITIS
     Route: 042
     Dates: start: 201001, end: 20140711
  4. ROACTEMRA [Suspect]
     Active Substance: TOCILIZUMAB
     Route: 058
     Dates: start: 201501, end: 201507
  5. PANTOPRAZOL [Concomitant]
     Active Substance: PANTOPRAZOLE SODIUM
  6. ROACTEMRA [Suspect]
     Active Substance: TOCILIZUMAB
     Route: 058
     Dates: start: 20161212
  7. MARCUMAR [Suspect]
     Active Substance: PHENPROCOUMON
     Indication: PRODUCT USED FOR UNKNOWN INDICATION
     Route: 065
  8. KORTISON [Concomitant]
     Active Substance: CORTISONE ACETATE
     Indication: RHEUMATOID ARTHRITIS
     Dosage: DOSE: 3-9 MG
     Route: 048
  9. KORTISON [Concomitant]
     Active Substance: CORTISONE ACETATE
     Route: 065
  10. JODTHYROX [Concomitant]
     Active Substance: LEVOTHYROXINE SODIUM\POTASSIUM IODIDE
  11. ROACTEMRA [Suspect]
     Active Substance: TOCILIZUMAB
     Route: 058
     Dates: start: 20160816
  12. IBUPROFEN. [Concomitant]
     Active Substance: IBUPROFEN
     Dosage: AS REQUIRED
     Route: 065
  13. ROACTEMRA [Suspect]
     Active Substance: TOCILIZUMAB
     Route: 058
     Dates: start: 20160204

REACTIONS (39)
  - Rash erythematous [Recovered/Resolved]
  - Tooth disorder [Not Recovered/Not Resolved]
  - Off label use [Unknown]
  - Tooth disorder [Unknown]
  - Oropharyngeal swelling [Unknown]
  - Joint swelling [Not Recovered/Not Resolved]
  - Oropharyngeal pain [Recovered/Resolved]
  - Blood pressure decreased [Recovered/Resolved]
  - Constipation [Not Recovered/Not Resolved]
  - Lymphocyte count decreased [Unknown]
  - Neutrophil count increased [Unknown]
  - Tonsillitis [Not Recovered/Not Resolved]
  - Sudden hearing loss [Recovering/Resolving]
  - Oral mucosal eruption [Recovered/Resolved]
  - Oropharyngeal pain [Not Recovered/Not Resolved]
  - Abdominal pain upper [Recovered/Resolved]
  - Bone marrow oedema [Unknown]
  - Anxiety [Recovered/Resolved]
  - Dizziness [Unknown]
  - Dizziness [Recovered/Resolved]
  - Nasal congestion [Not Recovered/Not Resolved]
  - Blood pressure increased [Recovered/Resolved]
  - Tendonitis [Not Recovered/Not Resolved]
  - Gastrointestinal disorder [Unknown]
  - Lymphadenopathy [Not Recovered/Not Resolved]
  - Somnolence [Not Recovered/Not Resolved]
  - Rheumatoid arthritis [Recovered/Resolved]
  - Speech disorder [Not Recovered/Not Resolved]
  - Skin disorder [Recovered/Resolved]
  - Hypertension [Not Recovered/Not Resolved]
  - Diarrhoea [Recovered/Resolved]
  - Arthralgia [Recovered/Resolved]
  - Joint swelling [Recovered/Resolved]
  - Dental caries [Unknown]
  - Gingivitis [Recovered/Resolved]
  - Toothache [Not Recovered/Not Resolved]
  - Pharyngitis [Recovered/Resolved]
  - White blood cell count increased [Recovered/Resolved]
  - Ear pain [Recovered/Resolved]

NARRATIVE: CASE EVENT DATE: 201401
